FAERS Safety Report 7275139-6 (Version None)
Quarter: 2011Q1

REPORT INFORMATION
  Report Type: 
  Country: None (occurrence: None)
  Receive Date: 20110204
  Receipt Date: 20110124
  Transmission Date: 20110831
  Serious: Yes (Death)
  Sender: FDA-Public Use
  Company Number: PHHY2010JP71938

PATIENT
  Sex: Male

DRUGS (6)
  1. PANALDINE [Concomitant]
     Dosage: 100 MG, UNK
     Route: 048
     Dates: start: 20071030
  2. BUFFERIN [Concomitant]
     Dosage: 81 MG, UNK
     Route: 048
     Dates: start: 20071030
  3. CEPHADOL [Concomitant]
     Dosage: 50 MG, UNK
     Route: 048
     Dates: start: 20071030
  4. TAKEPRON [Concomitant]
     Dosage: 15 MG, UNK
     Route: 048
     Dates: start: 20071030
  5. CARNACULIN [Concomitant]
     Dosage: 100 MG, UNK
     Route: 048
     Dates: start: 20071030
  6. VALSARTAN [Suspect]
     Dosage: 80 MG, QD
     Route: 048
     Dates: start: 20071030

REACTIONS (1)
  - ACUTE MYELOID LEUKAEMIA [None]
